FAERS Safety Report 21018214 (Version 1)
Quarter: 2022Q2

REPORT INFORMATION
  Report Type: Spontaneous
  Country: US (occurrence: None)
  Receive Date: 20220628
  Receipt Date: 20220628
  Transmission Date: 20220721
  Serious: Yes (Death, Life-Threatening, Hospitalization)
  Sender: FDA-Public Use
  Company Number: None

PATIENT
  Age: 76 Year
  Sex: Male
  Weight: 81 kg

DRUGS (1)
  1. KEYTRUDA [Suspect]
     Active Substance: PEMBROLIZUMAB
     Indication: Malignant melanoma
     Dosage: OTHER QUANTITY : 2 VIAL;?OTHER FREQUENCY : 3;?OTHER ROUTE : INJECTION PORT;?
     Route: 050
     Dates: start: 20220509

REACTIONS (11)
  - Abdominal pain [None]
  - Back pain [None]
  - Decreased appetite [None]
  - Dysphonia [None]
  - Aphonia [None]
  - Dysphagia [None]
  - Myasthenia gravis [None]
  - Blood glucose increased [None]
  - Aspartate aminotransferase increased [None]
  - Alanine aminotransferase increased [None]
  - Respiratory disorder [None]

NARRATIVE: CASE EVENT DATE: 20220606
